FAERS Safety Report 22272133 (Version 1)
Quarter: 2023Q2

REPORT INFORMATION
  Report Type: Report from Study
  Country: US (occurrence: US)
  Receive Date: 20230502
  Receipt Date: 20230502
  Transmission Date: 20230722
  Serious: Yes (Other)
  Sender: FDA-Public Use
  Company Number: US-ABBVIE-4745139

PATIENT
  Age: 68 Year
  Sex: Female

DRUGS (1)
  1. SKYRIZI [Suspect]
     Active Substance: RISANKIZUMAB-RZAA
     Indication: Psoriasis
     Route: 058
     Dates: start: 20210328

REACTIONS (15)
  - Foot fracture [Recovering/Resolving]
  - Multiple fractures [Recovering/Resolving]
  - COVID-19 [Recovered/Resolved]
  - Injection site reaction [Unknown]
  - Weight decreased [Unknown]
  - Fall [Unknown]
  - Swelling [Unknown]
  - Contusion [Unknown]
  - Asthenia [Unknown]
  - Respiratory disorder [Unknown]
  - Neuropathy peripheral [Unknown]
  - Frostbite [Unknown]
  - Pain [Unknown]
  - Pelvic fracture [Unknown]
  - Limb injury [Unknown]

NARRATIVE: CASE EVENT DATE: 20210506
